FAERS Safety Report 9226240 (Version 1)
Quarter: 2013Q2

REPORT INFORMATION
  Report Type: Spontaneous
  Country: US (occurrence: US)
  Receive Date: 20130411
  Receipt Date: 20130411
  Transmission Date: 20140414
  Serious: Yes (Other)
  Sender: FDA-Public Use
  Company Number: US-COVIDIEN/TYCO HEALTHCARE/MALLINCKRODT-T201301595

PATIENT
  Sex: Female

DRUGS (7)
  1. METHYLIN EXTENDED-RELEASE [Suspect]
     Indication: PRODUCT USED FOR UNKNOWN INDICATION
     Dosage: 20 MG, QD
     Dates: start: 2012
  2. MIRAPEX [Concomitant]
     Indication: RESTLESS LEGS SYNDROME
     Dosage: UNK
  3. TRAMADOL [Concomitant]
     Indication: PAIN
     Dosage: UNK
  4. ESTRACE [Concomitant]
     Indication: HORMONE REPLACEMENT THERAPY
     Dosage: UNK
  5. LEXAPRO [Concomitant]
     Indication: DEPRESSION
     Dosage: UNK
  6. WELLBUTRIN [Concomitant]
     Indication: DEPRESSION
     Dosage: UNK
  7. RESTASIS [Concomitant]
     Indication: DRY EYE
     Dosage: UNK

REACTIONS (1)
  - Visual acuity reduced [Recovering/Resolving]
